FAERS Safety Report 23766996 (Version 1)
Quarter: 2024Q2

REPORT INFORMATION
  Report Type: Spontaneous
  Country: US (occurrence: None)
  Receive Date: 20240419
  Receipt Date: 20240419
  Transmission Date: 20240716
  Serious: Yes (Hospitalization, Other)
  Sender: FDA-Public Use
  Company Number: None

PATIENT
  Age: 34 Year
  Sex: Female

DRUGS (2)
  1. BOTOX [Interacting]
     Active Substance: ONABOTULINUMTOXINA
     Indication: Barium swallow
     Dosage: OTHER QUANTITY : 54 UNITS;?
     Dates: start: 20240206, end: 20240206
  2. ADDERALL [Concomitant]
     Active Substance: AMPHETAMINE ASPARTATE\AMPHETAMINE SULFATE\DEXTROAMPHETAMINE SACCHARATE\DEXTROAMPHETAMINE SULFATE

REACTIONS (19)
  - Injection site haemorrhage [None]
  - Injection site bruising [None]
  - Asthenopia [None]
  - Eyelid ptosis [None]
  - Ocular hyperaemia [None]
  - Eye irritation [None]
  - Vision blurred [None]
  - Trismus [None]
  - Fatigue [None]
  - Sluggishness [None]
  - Muscular weakness [None]
  - Dysphagia [None]
  - Choking [None]
  - Dysphonia [None]
  - Tinnitus [None]
  - Dry mouth [None]
  - Hypoaesthesia [None]
  - Muscle spasms [None]
  - Fall [None]

NARRATIVE: CASE EVENT DATE: 20240407
